FAERS Safety Report 6278682-1 (Version None)
Quarter: 2009Q3

REPORT INFORMATION
  Report Type: 
  Country: None (occurrence: None)
  Receive Date: 20090722
  Receipt Date: 20090714
  Transmission Date: 20100115
  Serious: Yes (Hospitalization)
  Sender: FDA-Public Use
  Company Number: US-AMGEN-QUU355975

PATIENT
  Sex: Female

DRUGS (1)
  1. ENBREL [Suspect]
     Indication: RHEUMATOID ARTHRITIS
     Route: 058
     Dates: start: 20041001

REACTIONS (8)
  - CYSTITIS [None]
  - CYSTITIS ESCHERICHIA [None]
  - KIDNEY INFECTION [None]
  - MENISCUS LESION [None]
  - NEPHROLITHIASIS [None]
  - OSTEOARTHRITIS [None]
  - PELVIC DISCOMFORT [None]
  - SPINAL CORD COMPRESSION [None]
